FAERS Safety Report 9073714 (Version 1)
Quarter: 2013Q1

REPORT INFORMATION
  Report Type: Report from Study
  Country: US (occurrence: US)
  Receive Date: 20130129
  Receipt Date: 20130129
  Transmission Date: 20140127
  Serious: No
  Sender: FDA-Public Use
  Company Number: US-ABBOTT-12P-163-0922843-00

PATIENT
  Sex: Female
  Weight: 90.8 kg

DRUGS (4)
  1. HUMIRA 40 MG/ 0.8 ML PRE-FILLED SYRINGE [Suspect]
     Indication: RHEUMATOID ARTHRITIS
     Route: 058
     Dates: start: 201110, end: 201202
  2. METHOTREXATE [Concomitant]
     Indication: RHEUMATOID ARTHRITIS
  3. PREDNISONE [Concomitant]
     Indication: RHEUMATOID ARTHRITIS
  4. DOXYCYLINE [Concomitant]
     Indication: RHEUMATOID ARTHRITIS

REACTIONS (3)
  - Injection site urticaria [Recovered/Resolved]
  - Injection site urticaria [Recovered/Resolved]
  - Injection site urticaria [Recovered/Resolved]
